FAERS Safety Report 13172567 (Version 5)
Quarter: 2017Q1

REPORT INFORMATION
  Report Type: Report from Study
  Country: US (occurrence: US)
  Receive Date: 20170131
  Receipt Date: 20170330
  Transmission Date: 20170428
  Serious: Yes (Hospitalization)
  Sender: FDA-Public Use
  Company Number: US-ACTELION-A-US2017-149217

PATIENT
  Age: 73 Year
  Sex: Male
  Weight: 134.24 kg

DRUGS (4)
  1. UPTRAVI [Suspect]
     Active Substance: SELEXIPAG
     Indication: PULMONARY ARTERIAL HYPERTENSION
     Dosage: 1000 MCG, BID
     Route: 048
  2. UPTRAVI [Suspect]
     Active Substance: SELEXIPAG
     Dosage: 1200 MCG, BID
     Route: 048
  3. AMLODIPINE [Concomitant]
     Active Substance: AMLODIPINE BESYLATE
  4. UPTRAVI [Suspect]
     Active Substance: SELEXIPAG
     Dosage: UNK
     Route: 048
     Dates: start: 20161028

REACTIONS (11)
  - Urinary tract infection [Unknown]
  - Sepsis [Unknown]
  - Diarrhoea [Unknown]
  - Blood glucose decreased [Unknown]
  - Cellulitis [Unknown]
  - Cystitis [Unknown]
  - Myocardial infarction [Unknown]
  - Pneumonia [Unknown]
  - Escherichia infection [Unknown]
  - Hypoglycaemia [Unknown]
  - Anaemia [Unknown]
